FAERS Safety Report 12208335 (Version 5)
Quarter: 2016Q2

REPORT INFORMATION
  Report Type: Report from Study
  Country: US (occurrence: US)
  Receive Date: 20160324
  Receipt Date: 20160516
  Transmission Date: 20160815
  Serious: Yes (Death, Hospitalization)
  Sender: FDA-Public Use
  Company Number: US-EXELIXIS-CABO-16006154

PATIENT
  Age: 77 Year
  Sex: Female
  Weight: 53.79 kg

DRUGS (3)
  1. MIRALAX [Concomitant]
     Active Substance: POLYETHYLENE GLYCOL 3350
  2. COMETRIQ [Suspect]
     Active Substance: CABOZANTINIB S-MALATE
     Indication: LUNG NEOPLASM MALIGNANT
     Dosage: 60 MG, QD
     Route: 048
     Dates: start: 20151114, end: 20160225
  3. COMETRIQ [Suspect]
     Active Substance: CABOZANTINIB S-MALATE
     Dosage: 60 MG, QD
     Route: 048
     Dates: start: 20160321, end: 201604

REACTIONS (13)
  - Asthenia [Unknown]
  - Muscular weakness [Unknown]
  - Leukocytosis [Unknown]
  - Off label use [Unknown]
  - Dysphagia [Unknown]
  - Gastrointestinal haemorrhage [Unknown]
  - Deep vein thrombosis [Unknown]
  - Malignant neoplasm progression [Fatal]
  - Anal incontinence [Unknown]
  - Hyponatraemia [Unknown]
  - Spinal cord compression [Unknown]
  - Urinary retention [Unknown]
  - Tachycardia [Unknown]

NARRATIVE: CASE EVENT DATE: 20160316
